FAERS Safety Report 17429742 (Version 1)
Quarter: 2020Q1

REPORT INFORMATION
  Report Type: Spontaneous
  Country: NL (occurrence: NL)
  Receive Date: 20200218
  Receipt Date: 20200218
  Transmission Date: 20200409
  Serious: Yes (Life-Threatening, Hospitalization)
  Sender: FDA-Public Use
  Company Number: NL-TEVA-2020-NL-1186365

PATIENT
  Age: 46 Year
  Sex: Female

DRUGS (5)
  1. ISOSORBIDE MONONITRATE. [Concomitant]
     Active Substance: ISOSORBIDE MONONITRATE
     Indication: PRINZMETAL ANGINA
     Dosage: 120 MILLIGRAM DAILY; CONTROLLED-RELEASE
     Route: 048
  2. VERAPAMIL [Suspect]
     Active Substance: VERAPAMIL HYDROCHLORIDE
     Indication: PRINZMETAL ANGINA
     Dosage: 480 MILLIGRAM DAILY; CONTROLLED-RELEASE TABLET; TOTAL DAILY DOSE OF 480MG
     Route: 048
  3. VERAPAMIL [Suspect]
     Active Substance: VERAPAMIL HYDROCHLORIDE
     Dosage: NORMAL (IMMEDIATE) RELEASE TABLET; HE HAD RECEIVED ONLY 1 DOSE OF 120 MG BEFORE ONSET OF THE ADR
     Route: 048
  4. PERINDOPRIL [Concomitant]
     Active Substance: PERINDOPRIL
     Indication: PRINZMETAL ANGINA
     Route: 065
  5. NITROGLYCERINE [Concomitant]
     Active Substance: NITROGLYCERIN
     Indication: BLOOD PRESSURE ABNORMAL
     Dosage: 36 MILLIGRAM DAILY;
     Route: 042

REACTIONS (7)
  - Cardiac arrest [Recovered/Resolved]
  - Ventricular dysfunction [Recovered/Resolved]
  - Withdrawal syndrome [Recovered/Resolved]
  - Atrioventricular block complete [Recovered/Resolved]
  - Electrocardiogram ST segment elevation [Recovered/Resolved]
  - Arteriospasm coronary [Recovered/Resolved]
  - Pulseless electrical activity [Recovered/Resolved]
